FAERS Safety Report 14029529 (Version 1)
Quarter: 2017Q4

REPORT INFORMATION
  Report Type: Spontaneous
  Country: US (occurrence: US)
  Receive Date: 20171002
  Receipt Date: 20171002
  Transmission Date: 20180321
  Serious: No
  Sender: FDA-Public Use
  Company Number: US-JAZZ-2017-US-010789

PATIENT
  Sex: Female

DRUGS (18)
  1. ANDROGRAPHIS COMPLEX [Concomitant]
  2. FOLBEE PLUS [Concomitant]
  3. XYREM [Suspect]
     Active Substance: SODIUM OXYBATE
     Indication: CATAPLEXY
     Dosage: DOSE ADJUSTMENT
     Route: 048
     Dates: start: 201510, end: 201702
  4. DRENAMIN [Concomitant]
  5. POTASSIUM [Concomitant]
     Active Substance: POTASSIUM
  6. IODINE. [Concomitant]
     Active Substance: IODINE
  7. CYCLOBENZAPRINE. [Concomitant]
     Active Substance: CYCLOBENZAPRINE
  8. ULTRAZYME [Concomitant]
  9. XYREM [Suspect]
     Active Substance: SODIUM OXYBATE
     Dosage: 3G, BID
     Route: 048
     Dates: start: 201703
  10. XYREM [Suspect]
     Active Substance: SODIUM OXYBATE
     Indication: NARCOLEPSY
     Dosage: 2.25G, BID
     Route: 048
     Dates: start: 201510, end: 201510
  11. ARTIFICIAL TEARS                   /00222401/ [Concomitant]
     Active Substance: PROPYLENE GLYCOL
  12. CRANACTIN [Concomitant]
     Active Substance: DIETARY SUPPLEMENT
  13. GARLIC                             /01570501/ [Concomitant]
     Active Substance: GARLIC
  14. WHITE WILLOW BARK [Concomitant]
  15. ADRENAL [Concomitant]
     Active Substance: EPINEPHRINE
  16. COD LIVER OIL [Concomitant]
     Active Substance: COD LIVER OIL
  17. ACIDOPHILUS [Concomitant]
     Active Substance: LACTOBACILLUS ACIDOPHILUS
  18. EFFEXOR [Concomitant]
     Active Substance: VENLAFAXINE HYDROCHLORIDE

REACTIONS (4)
  - Vitamin D decreased [Not Recovered/Not Resolved]
  - Post-traumatic stress disorder [Unknown]
  - Fibromyalgia [Not Recovered/Not Resolved]
  - Disability [Unknown]
